FAERS Safety Report 17324408 (Version 4)
Quarter: 2020Q2

REPORT INFORMATION
  Report Type: Spontaneous
  Country: TN (occurrence: TN)
  Receive Date: 20200127
  Receipt Date: 20200520
  Transmission Date: 20200713
  Serious: Yes (Death, Other)
  Sender: FDA-Public Use
  Company Number: TN-BIOVITRUM-2020TN0296

PATIENT
  Age: 2 Year
  Sex: Female
  Weight: 9 kg

DRUGS (1)
  1. ORFADIN [Suspect]
     Active Substance: NITISINONE
     Indication: PRODUCT USED FOR UNKNOWN INDICATION
     Route: 048

REACTIONS (4)
  - Hepatocellular carcinoma [Unknown]
  - Nosocomial infection [Recovered/Resolved]
  - Peritonitis [Recovered/Resolved]
  - Acute hepatic failure [Fatal]

NARRATIVE: CASE EVENT DATE: 20190906
